FAERS Safety Report 5802672-3 (Version None)
Quarter: 2008Q3

REPORT INFORMATION
  Report Type: 
  Country: None (occurrence: None)
  Receive Date: 20080708
  Receipt Date: 20080708
  Transmission Date: 20090109
  Serious: Yes (Death)
  Sender: FDA-Public Use
  Company Number: None

PATIENT
  Age: 47 Year
  Sex: Male
  Weight: 90.7194 kg

DRUGS (1)
  1. HEPARIN [Suspect]
     Dosage: IV BOLUS
     Route: 040
     Dates: start: 20080309, end: 20080309

REACTIONS (1)
  - SHOCK [None]
